FAERS Safety Report 24648453 (Version 5)
Quarter: 2025Q1

REPORT INFORMATION
  Report Type: Report from Study
  Country: CO (occurrence: CO)
  Receive Date: 20241121
  Receipt Date: 20250326
  Transmission Date: 20250409
  Serious: Yes (Other)
  Sender: TAKEDA
  Company Number: CO-TAKEDA-2021TUS079076

PATIENT
  Age: 43 Year
  Sex: Female
  Weight: 85 kg

DRUGS (1)
  1. VEDOLIZUMAB [Suspect]
     Active Substance: VEDOLIZUMAB
     Indication: Colitis ulcerative

REACTIONS (24)
  - Colitis ulcerative [Unknown]
  - Oedema peripheral [Recovering/Resolving]
  - Somnolence [Recovering/Resolving]
  - Dizziness [Unknown]
  - Vomiting [Recovered/Resolved]
  - Headache [Unknown]
  - Pain in extremity [Recovered/Resolved]
  - Inappropriate schedule of product administration [Unknown]
  - Depressed mood [Unknown]
  - Vitiligo [Unknown]
  - Diarrhoea [Recovering/Resolving]
  - Pallor [Unknown]
  - Malaise [Unknown]
  - Faecal volume increased [Unknown]
  - Frequent bowel movements [Recovering/Resolving]
  - Eating disorder [Unknown]
  - White coat hypertension [Recovered/Resolved]
  - Toothache [Recovered/Resolved]
  - Incorrect drug administration rate [Unknown]
  - Product availability issue [Unknown]
  - Chest pain [Recovered/Resolved]
  - Abdominal pain [Recovering/Resolving]
  - Pyrexia [Unknown]
  - Nausea [Recovered/Resolved]

NARRATIVE: CASE EVENT DATE: 20211207
